FAERS Safety Report 7952453-X (Version None)
Quarter: 2011Q4

REPORT INFORMATION
  Report Type: 
  Country: None (occurrence: None)
  Receive Date: 20111201
  Receipt Date: 20111117
  Transmission Date: 20120403
  Serious: Yes (Other)
  Sender: FDA-Public Use
  Company Number: NL-CELGENEUS-114-21880-11112429

PATIENT
  Sex: Female
  Weight: 81 kg

DRUGS (3)
  1. REVLIMID [Suspect]
     Indication: MULTIPLE MYELOMA
     Dosage: 25 MILLIGRAM
     Route: 048
     Dates: start: 20070412, end: 20080313
  2. ASCAL [Concomitant]
     Route: 065
     Dates: start: 20070412, end: 20070719
  3. DEXAMETHASONE [Concomitant]
     Indication: MULTIPLE MYELOMA
     Route: 065
     Dates: start: 20070412, end: 20070510

REACTIONS (1)
  - BREAST CANCER STAGE II [None]
